FAERS Safety Report 14822398 (Version 3)
Quarter: 2018Q4

REPORT INFORMATION
  Report Type: Spontaneous
  Country: BR (occurrence: BR)
  Receive Date: 20180427
  Receipt Date: 20181012
  Transmission Date: 20190204
  Serious: Yes (Life-Threatening)
  Sender: FDA-Public Use
  Company Number: BR-B.I. PHARMACEUTICALS,INC./RIDGEFIELD-2018-BI-023029

PATIENT
  Age: 69 Year
  Sex: Female
  Weight: 60 kg

DRUGS (6)
  1. BENICAR HCT [Concomitant]
     Active Substance: HYDROCHLOROTHIAZIDE\OLMESARTAN MEDOXOMIL
     Indication: ARRHYTHMIA
  2. AAS [Concomitant]
     Active Substance: ASPIRIN
     Indication: DRUG THERAPY
     Route: 048
     Dates: start: 201303
  3. NEBLOCK [Concomitant]
     Active Substance: NEBIVOLOL HYDROCHLORIDE
     Indication: VENOUS OCCLUSION
     Route: 048
     Dates: start: 201303
  4. MICARDIS HCT [Suspect]
     Active Substance: HYDROCHLOROTHIAZIDE\TELMISARTAN
     Indication: HYPERTENSION
     Dosage: FORM STRENGTH: 80/12.5 MILLIGRAM
     Route: 048
     Dates: start: 20180407, end: 20180407
  5. ROSUCOR [Concomitant]
     Active Substance: ROSUVASTATIN CALCIUM
     Indication: BLOOD CHOLESTEROL ABNORMAL
     Route: 048
     Dates: start: 201303
  6. BENICAR HCT [Concomitant]
     Active Substance: HYDROCHLOROTHIAZIDE\OLMESARTAN MEDOXOMIL
     Indication: HYPERTENSION
     Dosage: FORM STRENGTH: 40/12.5 MG
     Route: 048
     Dates: start: 20180412

REACTIONS (12)
  - Headache [Recovered/Resolved]
  - Vomiting [Recovered/Resolved]
  - Feeding disorder [Recovered/Resolved]
  - Renal pain [Not Recovered/Not Resolved]
  - Heart rate increased [Recovered/Resolved]
  - Syncope [Recovered/Resolved]
  - Chest pain [Recovered/Resolved]
  - Dizziness [Recovered/Resolved]
  - Asthenia [Recovered/Resolved]
  - Abdominal pain upper [Recovered/Resolved]
  - Nasopharyngitis [Recovered/Resolved]
  - Back pain [Not Recovered/Not Resolved]

NARRATIVE: CASE EVENT DATE: 20180407
